FAERS Safety Report 16138112 (Version 4)
Quarter: 2019Q2

REPORT INFORMATION
  Report Type: Spontaneous
  Country: DE (occurrence: DE)
  Receive Date: 20190330
  Receipt Date: 20190628
  Transmission Date: 20190711
  Serious: Yes (Other)
  Sender: FDA-Public Use
  Company Number: DE-ACCORD-102760

PATIENT
  Age: 68 Year
  Sex: Male

DRUGS (12)
  1. AMITRIPTYLINE [Suspect]
     Active Substance: AMITRIPTYLINE
     Indication: TRIGEMINAL NEURALGIA
     Dosage: ALSO RECEIVED 20 MG AND AMITRIPTYLINE 10 DROPS (WEEK 8)
     Route: 065
  2. CAPSAICIN. [Suspect]
     Active Substance: CAPSAICIN
     Indication: PRODUCT USED FOR UNKNOWN INDICATION
     Dosage: 8%
     Route: 061
  3. GABAPENTIN. [Suspect]
     Active Substance: GABAPENTIN
     Indication: TRIGEMINAL NEURALGIA
     Dosage: GABAPENTIN 300-300-300,600-300-300 MG,300 MG
  4. AMBROXOL [Suspect]
     Active Substance: AMBROXOL
     Indication: PAIN
     Dosage: 20 % OINTMENT
     Route: 061
  5. HYDROMORPHONE/HYDROMORPHONE HYDROCHLORIDE [Suspect]
     Active Substance: HYDROMORPHONE
     Indication: TRIGEMINAL NEURALGIA
     Dosage: 4 MG, 2X/DAY (4 - 0 - 4 MG)
     Route: 065
  6. PREGABALIN. [Suspect]
     Active Substance: PREGABALIN
     Indication: TRIGEMINAL NEURALGIA
     Route: 065
  7. OXCARBAZEPINE. [Suspect]
     Active Substance: OXCARBAZEPINE
     Indication: TRIGEMINAL NEURALGIA
     Dosage: 150 MG, 2X/DAY, 600 MG,
  8. DEXKETOPROFEN/DEXKETOPROFEN TROMETAMOL [Concomitant]
     Indication: POST HERPETIC NEURALGIA
     Dosage: FOR 60 MINUTES
     Route: 050
  9. ACICLOVIR [Suspect]
     Active Substance: ACYCLOVIR
     Indication: TRIGEMINAL NEURALGIA
  10. LIDOCAINE/LIDOCAINE HYDROCHLORIDE [Suspect]
     Active Substance: LIDOCAINE
     Indication: TRIGEMINAL NEURALGIA
     Dosage: AT NIGHT
     Route: 061
  11. DEXAMETHASONE. [Suspect]
     Active Substance: DEXAMETHASONE
     Indication: PAIN
     Route: 065
  12. TAPENTADOL [Suspect]
     Active Substance: TAPENTADOL
     Indication: TRIGEMINAL NEURALGIA
     Dosage: 100-100-200 MG (AFTER 8 MONTHS)500 MG, 1X/DAY (150-150-200 MG),100-100-200 MG

REACTIONS (23)
  - Fall [Unknown]
  - Benign prostatic hyperplasia [Unknown]
  - Intentional product use issue [Unknown]
  - Burning sensation [Unknown]
  - Sleep apnoea syndrome [Recovered/Resolved]
  - Blood creatinine increased [Unknown]
  - Insomnia [Unknown]
  - Drug ineffective [Unknown]
  - Drug eruption [Unknown]
  - Constipation [Unknown]
  - Nasopharyngitis [Unknown]
  - Hypoaesthesia [Unknown]
  - Depression [Unknown]
  - Sleep deficit [Recovered/Resolved]
  - Erythema [Unknown]
  - Hyperaesthesia [Unknown]
  - Glaucoma [Unknown]
  - Confusional state [Unknown]
  - Quality of life decreased [Unknown]
  - Osteoarthritis [Unknown]
  - Fatigue [Unknown]
  - Liver function test increased [Unknown]
  - Atrial fibrillation [Unknown]
